FAERS Safety Report 25325991 (Version 1)
Quarter: 2025Q2

REPORT INFORMATION
  Report Type: Spontaneous
  Country: US (occurrence: US)
  Receive Date: 20250516
  Receipt Date: 20250516
  Transmission Date: 20250717
  Serious: No
  Sender: MYLAN
  Company Number: US-MYLANLABS-2025M1038853

PATIENT
  Age: 69 Year
  Sex: Female
  Weight: 136.53 kg

DRUGS (8)
  1. WIXELA INHUB [Suspect]
     Active Substance: FLUTICASONE PROPIONATE\SALMETEROL XINAFOATE
     Indication: Asthma
     Dosage: 250/50 MICROGRAM, BID (EVERY MORNING AND NIGHT)
     Dates: start: 202501
  2. WIXELA INHUB [Suspect]
     Active Substance: FLUTICASONE PROPIONATE\SALMETEROL XINAFOATE
     Dosage: 250/50 MICROGRAM, BID (EVERY MORNING AND NIGHT)
     Route: 065
     Dates: start: 202501
  3. WIXELA INHUB [Suspect]
     Active Substance: FLUTICASONE PROPIONATE\SALMETEROL XINAFOATE
     Dosage: 250/50 MICROGRAM, BID (EVERY MORNING AND NIGHT)
     Route: 065
     Dates: start: 202501
  4. WIXELA INHUB [Suspect]
     Active Substance: FLUTICASONE PROPIONATE\SALMETEROL XINAFOATE
     Dosage: 250/50 MICROGRAM, BID (EVERY MORNING AND NIGHT)
     Dates: start: 202501
  5. MONTELUKAST [Concomitant]
     Active Substance: MONTELUKAST
  6. MONTELUKAST [Concomitant]
     Active Substance: MONTELUKAST
     Route: 065
  7. MONTELUKAST [Concomitant]
     Active Substance: MONTELUKAST
     Route: 065
  8. MONTELUKAST [Concomitant]
     Active Substance: MONTELUKAST

REACTIONS (3)
  - Dyspnoea [Not Recovered/Not Resolved]
  - Device mechanical issue [Unknown]
  - Device malfunction [Unknown]

NARRATIVE: CASE EVENT DATE: 20250502
